FAERS Safety Report 6905851-7 (Version None)
Quarter: 2010Q3

REPORT INFORMATION
  Report Type: 
  Country: None (occurrence: None)
  Receive Date: 20100804
  Receipt Date: 20100726
  Transmission Date: 20110219
  Serious: Yes (Hospitalization)
  Sender: FDA-Public Use
  Company Number: US-ROCHE-715983

PATIENT
  Sex: Male
  Weight: 58.3 kg

DRUGS (11)
  1. BEVACIZUMAB [Suspect]
     Indication: NON-SMALL CELL LUNG CANCER
     Dosage: TAKEN OFF FROM PROTOCOL ON 07 JULY 2010.
     Route: 042
     Dates: start: 20100223, end: 20100618
  2. PACLITAXEL [Suspect]
     Indication: NON-SMALL CELL LUNG CANCER
     Route: 042
     Dates: start: 20100225, end: 20100429
  3. CARBOPLATIN [Suspect]
     Indication: NON-SMALL CELL LUNG CANCER
     Dosage: DOSE AUC 06
     Route: 042
     Dates: start: 20100225, end: 20100429
  4. PRILOSEC [Concomitant]
  5. LORTAB [Concomitant]
  6. MORPHINE [Concomitant]
  7. ZOFRAN [Concomitant]
  8. ATIVAN [Concomitant]
  9. COUMADIN [Concomitant]
  10. LOVENOX [Concomitant]
  11. COLACE [Concomitant]

REACTIONS (1)
  - SKIN DISORDER [None]
